FAERS Safety Report 8184021-1 (Version None)
Quarter: 2012Q1

REPORT INFORMATION
  Report Type: 
  Country: None (occurrence: None)
  Receive Date: 20120305
  Receipt Date: 20120302
  Transmission Date: 20120608
  Serious: Yes (Life-Threatening, Hospitalization)
  Sender: FDA-Public Use
  Company Number: US-SHIRE-ALL1-2011-04675

PATIENT
  Sex: Male

DRUGS (1)
  1. LIALDA [Suspect]
     Indication: COLITIS ULCERATIVE
     Dosage: 4.8 G, 1X/DAY:QD (FOUR 1.2 G TABLETS)
     Route: 048
     Dates: start: 20070101, end: 20111129

REACTIONS (6)
  - CLOSTRIDIAL INFECTION [None]
  - PYREXIA [None]
  - PERICARDIAL EFFUSION [None]
  - DIARRHOEA [None]
  - DYSPNOEA [None]
  - CARDIAC TAMPONADE [None]
